FAERS Safety Report 5916139-5 (Version None)
Quarter: 2008Q4

REPORT INFORMATION
  Report Type: 
  Country: None (occurrence: None)
  Receive Date: 20081013
  Receipt Date: 20081002
  Transmission Date: 20090506
  Serious: Yes (Hospitalization, Other)
  Sender: FDA-Public Use
  Company Number: GB-JNJFOC-20081001237

PATIENT
  Age: 73 Year
  Sex: Female
  Weight: 58 kg

DRUGS (14)
  1. REMICADE [Suspect]
     Indication: RHEUMATOID ARTHRITIS
     Route: 042
  2. METHOTREXATE [Concomitant]
  3. PREDNISOLONE [Concomitant]
  4. ADCAL D3 [Concomitant]
  5. CO-DANTHRUSATE [Concomitant]
  6. DF 118 [Concomitant]
  7. DICLOFENAC [Concomitant]
  8. FOLIC ACID [Concomitant]
  9. HYOSCINE HBR HYT [Concomitant]
  10. LACTULOSE [Concomitant]
  11. ACETAMINOPHEN [Concomitant]
  12. RABEPRAZOLE SODIUM [Concomitant]
  13. RISEDRONATE SODIUM [Concomitant]
  14. HYDROXYETHYLCELLULOSE [Concomitant]

REACTIONS (2)
  - HIP ARTHROPLASTY [None]
  - JOINT DISLOCATION [None]
